FAERS Safety Report 9260276 (Version 2)
Quarter: 2013Q2

REPORT INFORMATION
  Report Type: Spontaneous
  Country: PL (occurrence: PL)
  Receive Date: 20130429
  Receipt Date: 20130607
  Transmission Date: 20140414
  Serious: Yes (Hospitalization)
  Sender: FDA-Public Use
  Company Number: PL-BAYER-2013-052434

PATIENT
  Age: 26 Year
  Sex: Female
  Weight: 62 kg

DRUGS (1)
  1. ULTRAVIST [Suspect]
     Indication: COMPUTERISED TOMOGRAM ABDOMEN
     Dosage: 70 ML, UNK
     Route: 042
     Dates: start: 20130419, end: 20130419

REACTIONS (7)
  - Anaphylactic shock [None]
  - Genital haemorrhage [None]
  - Erythema [None]
  - Urticaria [None]
  - Abdominal pain [None]
  - Hypotension [None]
  - Heart rate decreased [None]
